FAERS Safety Report 8577244-0 (Version None)
Quarter: 2012Q3

REPORT INFORMATION
  Report Type: 
  Country: None (occurrence: None)
  Receive Date: 20120807
  Receipt Date: 20120731
  Transmission Date: 20120928
  Serious: No
  Sender: FDA-Public Use
  Company Number: US-ASTRAZENECA-2012SE54622

PATIENT
  Age: 58 Year
  Sex: Male

DRUGS (4)
  1. NEURONTIN [Concomitant]
  2. LISINOPRIL [Suspect]
     Route: 048
  3. CRESTOR [Suspect]
     Indication: DYSLIPIDAEMIA
     Route: 048
  4. FISH OIL [Concomitant]

REACTIONS (1)
  - MYOPATHY [None]
